FAERS Safety Report 5957950-4 (Version None)
Quarter: 2008Q4

REPORT INFORMATION
  Report Type: 
  Country: None (occurrence: None)
  Receive Date: 20081119
  Receipt Date: 20081112
  Transmission Date: 20090506
  Serious: Yes (Other)
  Sender: FDA-Public Use
  Company Number: US-JNJFOC-20081103053

PATIENT
  Sex: Male

DRUGS (4)
  1. REMICADE [Suspect]
     Indication: CROHN'S DISEASE
     Route: 042
  2. FOLIC ACID [Concomitant]
  3. UROCRITE [Concomitant]
  4. ALTASE [Concomitant]

REACTIONS (1)
  - HYPERTHYROIDISM [None]
